FAERS Safety Report 11598530 (Version 1)
Quarter: 2015Q3

REPORT INFORMATION
  Report Type: Spontaneous
  Country: US (occurrence: US)
  Receive Date: 20150916
  Receipt Date: 20150916
  Transmission Date: 20151125
  Serious: No
  Sender: FDA-Public Use
  Company Number: US-ELI_LILLY_AND_COMPANY-US200712001600

PATIENT
  Age: 86 Year
  Sex: Female
  Weight: 42.63 kg

DRUGS (5)
  1. CENTRUM SILVER [Concomitant]
     Active Substance: VITAMINS
  2. OSCAL [Concomitant]
     Active Substance: CALCIUM CARBONATE
  3. ECOTRIN [Concomitant]
     Active Substance: ASPIRIN
  4. FORTEO [Suspect]
     Active Substance: TERIPARATIDE
     Dosage: UNK, UNK
     Dates: start: 2006, end: 200711
  5. SCHIFF MOVE FREE [Concomitant]
     Active Substance: CHONDROITIN SULFATE A\GLUCOSAMINE

REACTIONS (2)
  - Fall [Recovered/Resolved]
  - Wrist fracture [Recovering/Resolving]

NARRATIVE: CASE EVENT DATE: 20071111
